FAERS Safety Report 19678205 (Version 1)
Quarter: 2021Q3

REPORT INFORMATION
  Report Type: Spontaneous
  Country: US (occurrence: US)
  Receive Date: 20210810
  Receipt Date: 20210810
  Transmission Date: 20211014
  Serious: No
  Sender: FDA-Public Use
  Company Number: US-DRREDDYS-SPO/USA/21/0138550

PATIENT
  Age: 32 Year
  Sex: Female

DRUGS (1)
  1. ZENATANE [Suspect]
     Active Substance: ISOTRETINOIN
     Indication: PRODUCT USED FOR UNKNOWN INDICATION
     Dosage: RMA ISSUE DATE: 11 APRIL 2021 12:08:14 PM, 06 MAY 2021 2:29:21 PM, 06 JUNE 2021 1:24:24 PM, 01 JULY

REACTIONS (2)
  - Adverse drug reaction [Unknown]
  - Arthralgia [Unknown]
